FAERS Safety Report 4362430-6 (Version None)
Quarter: 2004Q2

REPORT INFORMATION
  Report Type: 
  Country: None (occurrence: None)
  Receive Date: 20040521
  Receipt Date: 20031117
  Transmission Date: 20050107
  Serious: Yes (Hospitalization)
  Sender: FDA-Public Use
  Company Number: SE-ROCHE-351884

PATIENT
  Age: 68 Year
  Sex: Male

DRUGS (41)
  1. MYCOPHENOLATE MOFETIL [Suspect]
     Route: 065
     Dates: start: 20031019, end: 20031019
  2. MYCOPHENOLATE MOFETIL [Suspect]
     Route: 065
     Dates: start: 20031020
  3. METHYLPREDNISOLONE [Suspect]
     Route: 065
     Dates: start: 20031019, end: 20031019
  4. PREDNISOLONE [Suspect]
     Route: 065
     Dates: start: 20031020, end: 20031020
  5. PREDNISOLONE [Suspect]
     Route: 065
     Dates: start: 20031020, end: 20031020
  6. PREDNISOLONE [Suspect]
     Route: 065
     Dates: start: 20031021, end: 20031021
  7. PREDNISOLONE [Suspect]
     Route: 065
     Dates: start: 20031022, end: 20031022
  8. PREDNISOLONE [Suspect]
     Route: 065
     Dates: start: 20031023, end: 20031023
  9. PREDNISOLONE [Suspect]
     Route: 065
     Dates: start: 20031024, end: 20031024
  10. PREDNISOLONE [Suspect]
     Route: 065
     Dates: start: 20031025, end: 20031025
  11. PREDNISOLONE [Suspect]
     Route: 065
     Dates: start: 20031026, end: 20031026
  12. PREDNISOLONE [Suspect]
     Route: 065
     Dates: start: 20031027, end: 20031125
  13. PREDNISOLONE [Suspect]
     Route: 065
     Dates: start: 20031126, end: 20031214
  14. PREDNISOLONE [Suspect]
     Route: 065
     Dates: start: 20031215, end: 20040118
  15. PREDNISOLONE [Suspect]
     Route: 065
     Dates: start: 20040119
  16. CYCLOSPORINE [Suspect]
     Route: 065
     Dates: start: 20031019, end: 20031019
  17. CYCLOSPORINE [Suspect]
     Route: 065
     Dates: start: 20031020, end: 20031021
  18. CYCLOSPORINE [Suspect]
     Route: 065
     Dates: start: 20031022, end: 20031022
  19. CYCLOSPORINE [Suspect]
     Route: 065
     Dates: start: 20031023, end: 20031023
  20. CYCLOSPORINE [Suspect]
     Route: 065
     Dates: start: 20031024, end: 20031024
  21. CYCLOSPORINE [Suspect]
     Route: 065
     Dates: start: 20031025, end: 20031026
  22. CYCLOSPORINE [Suspect]
     Route: 065
     Dates: start: 20031027, end: 20031027
  23. CYCLOSPORINE [Suspect]
     Route: 065
     Dates: start: 20031028, end: 20031102
  24. CYCLOSPORINE [Suspect]
     Route: 065
     Dates: start: 20031103, end: 20031103
  25. CYCLOSPORINE [Suspect]
     Route: 065
     Dates: start: 20031104, end: 20031104
  26. CYCLOSPORINE [Suspect]
     Route: 065
     Dates: start: 20031105, end: 20031106
  27. CYCLOSPORINE [Suspect]
     Route: 065
     Dates: start: 20031107, end: 20031109
  28. CYCLOSPORINE [Suspect]
     Route: 065
     Dates: start: 20031110, end: 20031125
  29. CYCLOSPORINE [Suspect]
     Route: 065
     Dates: start: 20031126, end: 20031201
  30. CYCLOSPORINE [Suspect]
     Route: 065
     Dates: start: 20031202, end: 20031214
  31. CYCLOSPORINE [Suspect]
     Route: 065
     Dates: start: 20031215, end: 20031229
  32. CYCLOSPORINE [Suspect]
     Route: 065
     Dates: start: 20031230
  33. CANDESARTAN [Concomitant]
  34. METOPROLOL [Concomitant]
  35. ATORVASTATIN CALCIUM [Concomitant]
  36. AMLODIPIN [Concomitant]
  37. CEFUROXIM [Concomitant]
     Indication: PROPHYLAXIS
     Dates: start: 20031019, end: 20031019
  38. COTRIM [Concomitant]
     Dates: start: 20031029
  39. GLIPIZID [Concomitant]
     Dates: start: 20031102
  40. DARBEPOETIN ALFA [Concomitant]
     Dates: end: 20031019
  41. EPOGEN [Concomitant]
     Dates: start: 20031202

REACTIONS (12)
  - ANAEMIA [None]
  - FLUID RETENTION [None]
  - HAEMATOMA [None]
  - HYPERGLYCAEMIA [None]
  - HYPOCALCAEMIA [None]
  - HYPOKALAEMIA [None]
  - NAUSEA [None]
  - NOCTURNAL DYSPNOEA [None]
  - OEDEMA PERIPHERAL [None]
  - RENAL ARTERY STENOSIS [None]
  - VOMITING [None]
  - WEIGHT INCREASED [None]
